FAERS Safety Report 6935162-5 (Version None)
Quarter: 2010Q3

REPORT INFORMATION
  Report Type: 
  Country: None (occurrence: None)
  Receive Date: 20100822
  Receipt Date: 20100816
  Transmission Date: 20110219
  Serious: Yes (Death, Hospitalization)
  Sender: FDA-Public Use
  Company Number: PHHY2010CA19739

PATIENT
  Sex: Female

DRUGS (23)
  1. CLOZARIL [Suspect]
     Indication: BIPOLAR DISORDER
     Dosage: 250 MG HS
     Dates: start: 20050425
  2. CLOZARIL [Suspect]
     Indication: ANOXIA
     Dosage: 200 MG HS
     Dates: start: 20100101
  3. CLOZARIL [Suspect]
     Dosage: 150 MG HS
     Route: 048
     Dates: start: 20100113
  4. CLOZARIL [Suspect]
     Dosage: 100 MG HS
     Route: 048
     Dates: end: 20100114
  5. ACETAMINOPHEN [Concomitant]
     Dosage: 325 MG 2 TABS QID PRN
  6. QUETIAPINE [Concomitant]
     Dosage: 250 MG HS
     Route: 048
  7. APO-DIVALPROEX [Concomitant]
     Dosage: 500 MG TID + 250 MG PO HS
  8. FLOVENT [Concomitant]
     Dosage: 125 MICROGRAMS 2 INHALATIONS BID
  9. CALCIUM [Concomitant]
     Dosage: 500 MG
  10. VITAMIN D [Concomitant]
     Dosage: 400 IU, BID
  11. SENOKOT [Concomitant]
     Dosage: 1 TO 2 TABS DAILY
     Route: 048
  12. LACTULOSE [Concomitant]
     Dosage: 15 ML BID PRN
     Route: 048
  13. COLACE [Concomitant]
     Dosage: 200 MG, BID
     Route: 048
  14. OXYBUTYNIN [Concomitant]
     Dosage: 2.5 MG, BID
     Route: 048
  15. VENTOLIN [Concomitant]
     Dosage: 2 INHALATIONS QID PRN
  16. RISPERDAL [Concomitant]
     Dosage: 1 MG HALF A TAB PO HS
  17. PANTOPRAZOLE [Concomitant]
     Dosage: UNK
     Route: 048
  18. EPIVAL [Concomitant]
  19. SEROQUEL [Concomitant]
  20. HALDOL [Concomitant]
  21. TRAMADOL HCL [Concomitant]
  22. OXYGEN [Concomitant]
     Dosage: PRN
  23. INTRAVENOUS [Concomitant]

REACTIONS (18)
  - ABDOMINAL PAIN [None]
  - ANTIPSYCHOTIC DRUG LEVEL BELOW THERAPEUTIC [None]
  - ANTIPSYCHOTIC DRUG LEVEL INCREASED [None]
  - ASTHENIA [None]
  - CONFUSIONAL STATE [None]
  - CONSTIPATION [None]
  - DEATH [None]
  - DELIRIUM [None]
  - ENCEPHALOPATHY [None]
  - GENERAL PHYSICAL HEALTH DETERIORATION [None]
  - HYPOALBUMINAEMIA [None]
  - IATROGENIC INJURY [None]
  - MALNUTRITION [None]
  - NAUSEA [None]
  - PERIPHERAL ISCHAEMIA [None]
  - PULMONARY OEDEMA [None]
  - RENAL FAILURE ACUTE [None]
  - VOMITING [None]
